FAERS Safety Report 6444509-8 (Version None)
Quarter: 2009Q4

REPORT INFORMATION
  Report Type: 
  Country: None (occurrence: None)
  Receive Date: 20091117
  Receipt Date: 20091117
  Transmission Date: 20100525
  Serious: Yes (Hospitalization)
  Sender: FDA-Public Use
  Company Number: None

PATIENT
  Age: 41 Year
  Sex: Male
  Weight: 82 kg

DRUGS (1)
  1. OLANZAPINE [Suspect]
     Dosage: 30 MG DAILY PO
     Route: 048

REACTIONS (5)
  - DEHYDRATION [None]
  - MENTAL STATUS CHANGES [None]
  - PANCREATITIS [None]
  - RHABDOMYOLYSIS [None]
  - URINARY TRACT INFECTION [None]
